FAERS Safety Report 10615589 (Version 2)
Quarter: 2014Q4

REPORT INFORMATION
  Report Type: Spontaneous
  Country: HU (occurrence: HU)
  Receive Date: 20141201
  Receipt Date: 20141201
  Transmission Date: 20150529
  Serious: Yes (Life-Threatening)
  Sender: FDA-Public Use
  Company Number: HU-BAYER-2014-131403

PATIENT
  Sex: Female

DRUGS (1)
  1. STIVARGA [Suspect]
     Active Substance: REGORAFENIB
     Indication: COLORECTAL CANCER METASTATIC
     Dosage: DAILY DOSE 160 MG
     Route: 048
     Dates: start: 20140809, end: 20140817

REACTIONS (11)
  - Unevaluable event [None]
  - Fatigue [Recovered/Resolved]
  - Jaundice [Recovered/Resolved]
  - Vomiting [Recovered/Resolved]
  - Hepatotoxicity [Recovered/Resolved]
  - Nausea [Recovered/Resolved]
  - Gingivitis [None]
  - Rash [Recovered/Resolved]
  - Musculoskeletal pain [None]
  - Pruritus [Recovered/Resolved]
  - Mucosal inflammation [None]

NARRATIVE: CASE EVENT DATE: 20140817
